FAERS Safety Report 5324128-7 (Version None)
Quarter: 2007Q2

REPORT INFORMATION
  Report Type: 
  Country: None (occurrence: None)
  Receive Date: 20070514
  Receipt Date: 20060815
  Transmission Date: 20071010
  Serious: No
  Sender: FDA-Public Use
  Company Number: A0616750A

PATIENT
  Age: 66 Year
  Sex: Female

DRUGS (2)
  1. RELAFEN [Suspect]
     Indication: RHEUMATOID ARTHRITIS
     Route: 048
  2. ANTI-CHOLESTEROL MEDICATION [Concomitant]

REACTIONS (1)
  - MYALGIA [None]
